FAERS Safety Report 13210230 (Version 3)
Quarter: 2017Q1

REPORT INFORMATION
  Report Type: Spontaneous
  Country: US (occurrence: US)
  Receive Date: 20170209
  Receipt Date: 20170308
  Transmission Date: 20170428
  Serious: No
  Sender: FDA-Public Use
  Company Number: US-ACTELION-A-NJ2017-149659

PATIENT
  Age: 68 Year
  Sex: Female

DRUGS (8)
  1. ADCIRCA [Concomitant]
     Active Substance: TADALAFIL
  2. SPIRONOLACTONE. [Concomitant]
     Active Substance: SPIRONOLACTONE
  3. UPTRAVI [Suspect]
     Active Substance: SELEXIPAG
     Indication: PULMONARY ARTERIAL HYPERTENSION
     Dosage: 800 MCG, BID
     Route: 048
  4. MULTIVITAMIN [Concomitant]
     Active Substance: VITAMINS
  5. ADEMPAS [Concomitant]
     Active Substance: RIOCIGUAT
  6. BUMETANIDE. [Concomitant]
     Active Substance: BUMETANIDE
  7. OPSUMIT [Concomitant]
     Active Substance: MACITENTAN
     Indication: PULMONARY ARTERIAL HYPERTENSION
     Dosage: 10 MG, UNK
     Route: 048
     Dates: start: 20161019
  8. UPTRAVI [Suspect]
     Active Substance: SELEXIPAG
     Dosage: 600 UNK, UNK
     Route: 048

REACTIONS (8)
  - Anxiety [Unknown]
  - Hypotension [Unknown]
  - Pain [Unknown]
  - Condition aggravated [Unknown]
  - Limb discomfort [Unknown]
  - Rash [Unknown]
  - Memory impairment [Recovered/Resolved]
  - Drug dose omission [Recovered/Resolved]

NARRATIVE: CASE EVENT DATE: 201702
